APPROVED DRUG PRODUCT: ESOMEPRAZOLE MAGNESIUM
Active Ingredient: ESOMEPRAZOLE MAGNESIUM
Strength: EQ 40MG BASE/PACKET
Dosage Form/Route: FOR SUSPENSION, DELAYED RELEASE;ORAL
Application: A206055 | Product #002 | TE Code: AB
Applicant: ZYDUS PHARMACEUTICALS USA INC
Approved: Jun 7, 2023 | RLD: No | RS: No | Type: RX